FAERS Safety Report 6867673-5 (Version None)
Quarter: 2010Q3

REPORT INFORMATION
  Report Type: 
  Country: None (occurrence: None)
  Receive Date: 20100722
  Receipt Date: 20100305
  Transmission Date: 20110219
  Serious: No
  Sender: FDA-Public Use
  Company Number: US-BAUSCH-2010BL001296

PATIENT
  Age: 21 Year
  Sex: Male

DRUGS (2)
  1. OPCON-A [Suspect]
     Indication: EYE IRRITATION
     Route: 047
     Dates: start: 20100305, end: 20100305
  2. OPCON-A [Suspect]
     Indication: OFF LABEL USE
     Route: 047
     Dates: start: 20100305, end: 20100305

REACTIONS (2)
  - EYE IRRITATION [None]
  - EYE PAIN [None]
